FAERS Safety Report 14148955 (Version 3)
Quarter: 2017Q4

REPORT INFORMATION
  Report Type: Spontaneous
  Country: IT (occurrence: IT)
  Receive Date: 20171101
  Receipt Date: 20171212
  Transmission Date: 20180321
  Serious: Yes (Life-Threatening, Other)
  Sender: FDA-Public Use
  Company Number: IT-BAYER-2017-206231

PATIENT
  Age: 43 Year
  Sex: Female

DRUGS (1)
  1. JAYDESS [Suspect]
     Active Substance: LEVONORGESTREL
     Indication: CHEMICAL CONTRACEPTION
     Dosage: 14 MCG/24HR, CONT
     Route: 015
     Dates: start: 20151021, end: 20171024

REACTIONS (8)
  - Ectopic pregnancy [Recovered/Resolved with Sequelae]
  - Hypomenorrhoea [Recovered/Resolved with Sequelae]
  - Salpingectomy [Recovered/Resolved with Sequelae]
  - Presyncope [Recovered/Resolved with Sequelae]
  - Peritoneal haemorrhage [Recovered/Resolved with Sequelae]
  - Drug ineffective [Recovered/Resolved with Sequelae]
  - Pain [Recovered/Resolved with Sequelae]
  - Menstrual cycle management [Recovered/Resolved with Sequelae]

NARRATIVE: CASE EVENT DATE: 20171024
